FAERS Safety Report 9193875 (Version 2)
Quarter: 2013Q2

REPORT INFORMATION
  Report Type: Spontaneous
  Country: US (occurrence: US)
  Receive Date: 20130327
  Receipt Date: 20130626
  Transmission Date: 20140414
  Serious: No
  Sender: FDA-Public Use
  Company Number: US-PFIZER INC-2013099247

PATIENT
  Age: 60 Year
  Sex: Female

DRUGS (6)
  1. XELJANZ [Suspect]
     Indication: RHEUMATOID ARTHRITIS
     Dosage: 5 MG, BID
     Route: 048
     Dates: start: 20130129, end: 20130201
  2. ROPINIROLE [Concomitant]
     Indication: RESTLESS LEGS SYNDROME
     Dosage: UNK, 2-3 TAB HS
     Dates: start: 2010
  3. TRAZODONE [Concomitant]
     Indication: INSOMNIA
     Dosage: 50 MG, 1-3 HS
     Dates: start: 2009
  4. NEXIUM [Concomitant]
     Indication: GASTROOESOPHAGEAL REFLUX DISEASE
     Dosage: 40 MG, DAILY
     Dates: start: 2009
  5. SOMA [Concomitant]
     Dosage: 350 MG, QID PRN
     Dates: start: 2008
  6. PROAIR HFA [Concomitant]
     Indication: ASTHMA
     Dosage: ONE PUFF ONCE DAILY AS NEEDED, TOOK ABOUT MONTHLY
     Dates: start: 2009

REACTIONS (1)
  - Rash generalised [Recovered/Resolved]
